FAERS Safety Report 13075535 (Version 1)
Quarter: 2016Q4

REPORT INFORMATION
  Report Type: Spontaneous
  Country: DE (occurrence: DE)
  Receive Date: 20161230
  Receipt Date: 20161230
  Transmission Date: 20170207
  Serious: Yes (Hospitalization)
  Sender: FDA-Public Use
  Company Number: DE-TEVA-723617GER

PATIENT
  Age: 61 Year
  Sex: Female

DRUGS (12)
  1. ALLOPURINOL. [Concomitant]
     Active Substance: ALLOPURINOL
     Indication: GOUT
     Dosage: 300 MILLIGRAM DAILY;
     Route: 048
     Dates: start: 2008
  2. MOXIFLOXACIN PUREN 400 MG FILMTABLETTEN [Suspect]
     Active Substance: MOXIFLOXACIN
     Indication: PYREXIA
  3. METFORMIN [Concomitant]
     Active Substance: METFORMIN HYDROCHLORIDE
     Indication: TYPE 2 DIABETES MELLITUS
     Dosage: 2000 MILLIGRAM DAILY;
     Route: 048
     Dates: start: 2014
  4. MOXIFLOXACIN PUREN 400 MG FILMTABLETTEN [Suspect]
     Active Substance: MOXIFLOXACIN
     Indication: BACTERIAL INFECTION
     Dosage: 400 MILLIGRAM DAILY;
     Route: 048
     Dates: start: 20160924, end: 20160930
  5. ATORVASTATIN [Concomitant]
     Active Substance: ATORVASTATIN
     Route: 048
     Dates: start: 2015
  6. BISOPROLOL/HYDROCHLOROTHIAZIDE [Concomitant]
     Active Substance: BISOPROLOL FUMARATE\HYDROCHLOROTHIAZIDE
     Dosage: 1 DF CONTAINS: 10MG BISOPROLOL/25MG HYDROCHLOROTHIAZIDE
     Route: 048
     Dates: start: 2006
  7. ELIQUIS [Concomitant]
     Active Substance: APIXABAN
     Indication: ATRIAL FIBRILLATION
     Dosage: 5 MILLIGRAM DAILY;
     Route: 048
     Dates: start: 2015
  8. OMEPRAZOL [Concomitant]
     Active Substance: OMEPRAZOLE
     Dosage: 40 MILLIGRAM DAILY;
     Route: 048
     Dates: start: 1988
  9. ENALAPRIL [Concomitant]
     Active Substance: ENALAPRIL
     Route: 048
     Dates: start: 2006
  10. SAROTEN RETARD TABS [Concomitant]
     Dosage: 25 MILLIGRAM DAILY;
     Route: 048
     Dates: start: 1986
  11. RELVAR ELLIPTA [Concomitant]
     Active Substance: FLUTICASONE FUROATE\VILANTEROL TRIFENATATE
     Indication: CHRONIC OBSTRUCTIVE PULMONARY DISEASE
     Dates: start: 2014
  12. PREDNISOLOL [Concomitant]
     Indication: MULTIPLE SCLEROSIS
     Route: 042

REACTIONS (3)
  - Sensory loss [Not Recovered/Not Resolved]
  - Ageusia [Not Recovered/Not Resolved]
  - Anosmia [Not Recovered/Not Resolved]

NARRATIVE: CASE EVENT DATE: 20160927
